FAERS Safety Report 15761508 (Version 2)
Quarter: 2019Q1

REPORT INFORMATION
  Report Type: Spontaneous
  Country: US (occurrence: US)
  Receive Date: 20181226
  Receipt Date: 20190124
  Transmission Date: 20190417
  Serious: Yes (Death, Hospitalization)
  Sender: FDA-Public Use
  Company Number: US-VERTEX PHARMACEUTICALS-2018-009457

PATIENT
  Age: 30 Year
  Sex: Female

DRUGS (14)
  1. MONTELUKAST [Concomitant]
     Active Substance: MONTELUKAST SODIUM
     Dosage: UNK
  2. LEVOTHYROXINE. [Concomitant]
     Active Substance: LEVOTHYROXINE
     Dosage: UNK
  3. VANCOMYCIN [Concomitant]
     Active Substance: VANCOMYCIN
     Dosage: 500 MG
  4. PULMOZYME [Concomitant]
     Active Substance: DORNASE ALFA
     Dosage: UNK
  5. FUROSEMIDE. [Concomitant]
     Active Substance: FUROSEMIDE
     Dosage: UNK
  6. AZITHROMYCIN ANHYDROUS. [Concomitant]
     Active Substance: AZITHROMYCIN ANHYDROUS
     Dosage: UNK
  7. LINEZOLID. [Concomitant]
     Active Substance: LINEZOLID
     Dosage: UNK
  8. KITABIS PAK [Concomitant]
     Active Substance: TOBRAMYCIN
     Dosage: UNK
  9. SYMDEKO [Suspect]
     Active Substance: IVACAFTOR\TEZACAFTOR
     Indication: CYSTIC FIBROSIS
     Dosage: 100MG TEZACAFTOR/150MG IVACAFTOR; 150MG IVACAFTOR, BID
     Route: 048
     Dates: start: 20180502
  10. ZENPEP [Concomitant]
     Active Substance: PANCRELIPASE AMYLASE\PANCRELIPASE LIPASE\PANCRELIPASE PROTEASE
     Dosage: UNK
  11. OMEPRAZOLE. [Concomitant]
     Active Substance: OMEPRAZOLE
     Dosage: UNK
  12. CYPROHEPTADINE. [Concomitant]
     Active Substance: CYPROHEPTADINE
     Dosage: UNK
  13. LEVOFLOXACIN. [Concomitant]
     Active Substance: LEVOFLOXACIN
     Dosage: UNK
  14. LANTUS [Concomitant]
     Active Substance: INSULIN GLARGINE
     Dosage: UNK

REACTIONS (6)
  - Hypophagia [Unknown]
  - Weight decreased [Unknown]
  - Death [Fatal]
  - Bronchial secretion retention [Not Recovered/Not Resolved]
  - Pulmonary haemorrhage [Not Recovered/Not Resolved]
  - Product dose omission [Not Recovered/Not Resolved]

NARRATIVE: CASE EVENT DATE: 201812
